FAERS Safety Report 9338596 (Version 1)
Quarter: 2013Q2

REPORT INFORMATION
  Report Type: Spontaneous
  Country: US (occurrence: None)
  Receive Date: 20130605
  Receipt Date: 20130605
  Transmission Date: 20140414
  Serious: No
  Sender: FDA-Public Use
  Company Number: None

PATIENT
  Age: 57 Year
  Sex: Male

DRUGS (4)
  1. ZELBORAF [Suspect]
     Dosage: 4 TABLETS, BID, PO
     Route: 048
     Dates: start: 201205
  2. LISINOPRIL [Concomitant]
  3. EFFIENT [Concomitant]
  4. SIMVASTATIN [Concomitant]

REACTIONS (3)
  - Fatigue [None]
  - Dysgeusia [None]
  - Decreased appetite [None]
